FAERS Safety Report 7574328-0 (Version None)
Quarter: 2011Q2

REPORT INFORMATION
  Report Type: 
  Country: None (occurrence: None)
  Receive Date: 20110627
  Receipt Date: 20110616
  Transmission Date: 20111010
  Serious: Yes (Hospitalization, Other)
  Sender: FDA-Public Use
  Company Number: GB-MERCK-1106GBR00081

PATIENT
  Age: 50 Year
  Sex: Female
  Weight: 137 kg

DRUGS (4)
  1. COZAAR [Suspect]
     Route: 048
  2. AMLODIPINE [Suspect]
     Route: 065
  3. COZAAR [Suspect]
     Route: 048
  4. AMLODIPINE [Suspect]
     Route: 065

REACTIONS (7)
  - PULMONARY OEDEMA [None]
  - HYPOTENSION [None]
  - METABOLIC ACIDOSIS [None]
  - ANURIA [None]
  - OVERDOSE [None]
  - RENAL IMPAIRMENT [None]
  - HYPERKALAEMIA [None]
